FAERS Safety Report 11846448 (Version 1)
Quarter: 2015Q4

REPORT INFORMATION
  Report Type: Spontaneous
  Country: US (occurrence: US)
  Receive Date: 20151217
  Receipt Date: 20151217
  Transmission Date: 20160305
  Serious: Yes (Other)
  Sender: FDA-Public Use
  Company Number: US-ASTRAZENECA-2015SF26087

PATIENT
  Sex: Male

DRUGS (1)
  1. XIGDUO XR [Suspect]
     Active Substance: DAPAGLIFLOZIN PROPANEDIOL\METFORMIN HYDROCHLORIDE
     Indication: TYPE 2 DIABETES MELLITUS
     Route: 048
     Dates: start: 20151205, end: 20151208

REACTIONS (4)
  - Abdominal pain [Unknown]
  - Fatigue [Unknown]
  - Diabetic ketoacidosis [Unknown]
  - Polyuria [Unknown]

NARRATIVE: CASE EVENT DATE: 201512
